FAERS Safety Report 16473441 (Version 1)
Quarter: 2019Q2

REPORT INFORMATION
  Report Type: Spontaneous
  Country: US (occurrence: US)
  Receive Date: 20190625
  Receipt Date: 20190625
  Transmission Date: 20190711
  Serious: Yes (Hospitalization)
  Sender: FDA-Public Use
  Company Number: US-PFIZER INC-2019269376

PATIENT
  Age: 67 Year
  Sex: Female

DRUGS (1)
  1. BOSULIF [Suspect]
     Active Substance: BOSUTINIB MONOHYDRATE
     Dosage: 500 MG, UNK
     Dates: start: 20180703

REACTIONS (7)
  - Blood pressure fluctuation [Unknown]
  - Diarrhoea [Recovering/Resolving]
  - Kidney infection [Unknown]
  - Urinary tract infection [Unknown]
  - Fatigue [Unknown]
  - Vomiting [Unknown]
  - Dehydration [Unknown]
